FAERS Safety Report 14424363 (Version 2)
Quarter: 2018Q1

REPORT INFORMATION
  Report Type: Other
  Country: IT (occurrence: IT)
  Receive Date: 20180123
  Receipt Date: 20180221
  Transmission Date: 20180509
  Serious: Yes (Hospitalization)
  Sender: FDA-Public Use
  Company Number: IT-ASTELLAS-2018US004289

PATIENT
  Age: 57 Year
  Sex: Male

DRUGS (23)
  1. AMPHOTERICIN B, LIPOSOME [Suspect]
     Active Substance: AMPHOTERICIN B
     Dosage: 3 MG/KG, ONCE DAILY DAY 24
     Route: 042
  2. AZATHIOPRINE. [Suspect]
     Active Substance: AZATHIOPRINE
     Dosage: UNK, UNKNOWN FREQ.
     Route: 065
  3. GLUCANTIME [Suspect]
     Active Substance: MEGLUMINE ANTIMONIATE
     Indication: LEISHMANIASIS
     Dosage: UNK, UNKNOWN FREQ.
     Route: 065
  4. GLUCANTIME [Suspect]
     Active Substance: MEGLUMINE ANTIMONIATE
     Dosage: UNK, UNKNOWN FREQ.
     Route: 065
  5. AMPHOTERICIN B LIPID COMPLEX [Suspect]
     Active Substance: AMPHOTERICIN B
     Indication: LEISHMANIASIS
     Dosage: UNK UNK, UNKNOWN FREQ. DAY 17
     Route: 042
  6. AMPHOTERICIN B LIPID COMPLEX [Suspect]
     Active Substance: AMPHOTERICIN B
     Route: 042
  7. AMPHOTERICIN B LIPID COMPLEX [Suspect]
     Active Substance: AMPHOTERICIN B
     Dosage: UNK, UNKNOWN FREQ. DAY 24
     Route: 042
  8. GLUCANTIME [Suspect]
     Active Substance: MEGLUMINE ANTIMONIATE
     Dosage: 20 MG/KG, OF 2 CYCLES OF 15 DAYS EACH
     Route: 030
  9. GLUCANTIME [Suspect]
     Active Substance: MEGLUMINE ANTIMONIATE
     Dosage: 20 MG/KG, OF 2 CYCLES OF 15 DAYS EACH
     Route: 030
  10. GLUCANTIME [Suspect]
     Active Substance: MEGLUMINE ANTIMONIATE
     Dosage: UNK, UNKNOWN FREQ.
     Route: 065
  11. AZATHIOPRINE. [Suspect]
     Active Substance: AZATHIOPRINE
     Indication: IMMUNOSUPPRESSION
     Dosage: UNK, UNKNOWN FREQ.
     Route: 065
  12. GLUCANTIME [Suspect]
     Active Substance: MEGLUMINE ANTIMONIATE
     Dosage: UNK, UNKNOWN FREQ.
     Route: 065
  13. PREDNISONE. [Suspect]
     Active Substance: PREDNISONE
     Dosage: UNK, UNKNOWN FREQ. REDUCED DOSE
     Route: 065
  14. AMPHOTERICIN B, LIPOSOME [Suspect]
     Active Substance: AMPHOTERICIN B
     Indication: LEISHMANIASIS
     Dosage: 3 MG/KG, ONCE DAILY DAY 38
     Route: 042
  15. AMPHOTERICIN B, LIPOSOME [Suspect]
     Active Substance: AMPHOTERICIN B
     Route: 042
  16. AMPHOTERICIN B LIPID COMPLEX [Suspect]
     Active Substance: AMPHOTERICIN B
     Dosage: UNK UNK, UNKNOWN FREQ. DAY 28
     Route: 042
  17. AMPHOTERICIN B, LIPOSOME [Suspect]
     Active Substance: AMPHOTERICIN B
     Dosage: 3 MG/KG, ONCE DAILY DAY 31
     Route: 042
  18. AMPHOTERICIN B LIPID COMPLEX [Suspect]
     Active Substance: AMPHOTERICIN B
     Dosage: UNK, UNKNOWN FREQ. DAY 31
     Route: 042
  19. GLUCANTIME [Suspect]
     Active Substance: MEGLUMINE ANTIMONIATE
     Dosage: UNK, UNKNOWN FREQ.
     Route: 065
  20. PREDNISONE. [Suspect]
     Active Substance: PREDNISONE
     Dosage: UNK, UNKNOWN FREQ. REDUCED DOSE
     Route: 065
  21. PREDNISONE. [Suspect]
     Active Substance: PREDNISONE
     Dosage: UNK, UNKNOWN FREQ.
     Route: 065
  22. AMPHOTERICIN B, LIPOSOME [Suspect]
     Active Substance: AMPHOTERICIN B
     Dosage: 3 MG/KG, ONCE DAILY DAY 17
     Route: 042
  23. PREDNISONE. [Suspect]
     Active Substance: PREDNISONE
     Indication: IMMUNOSUPPRESSION
     Dosage: UNK, UNKNOWN FREQ.
     Route: 065

REACTIONS (14)
  - Splenomegaly [Recovering/Resolving]
  - Leukopenia [Recovering/Resolving]
  - Leishmaniasis [Recovering/Resolving]
  - Mucocutaneous leishmaniasis [Recovering/Resolving]
  - Hypergammaglobulinaemia [Recovering/Resolving]
  - Myalgia [Unknown]
  - Disease progression [Recovering/Resolving]
  - Drug ineffective [Unknown]
  - Palatal swelling [Recovering/Resolving]
  - Mastication disorder [Recovering/Resolving]
  - Pyrexia [Recovering/Resolving]
  - Abdominal pain [Unknown]
  - Headache [Unknown]
  - Visceral leishmaniasis [Recovering/Resolving]

NARRATIVE: CASE EVENT DATE: 1994
